FAERS Safety Report 6284711-1 (Version None)
Quarter: 2009Q3

REPORT INFORMATION
  Report Type: 
  Country: None (occurrence: None)
  Receive Date: 20090723
  Receipt Date: 20090708
  Transmission Date: 20100115
  Serious: Yes (Hospitalization)
  Sender: FDA-Public Use
  Company Number: 2009BM000152

PATIENT
  Age: 57 Year
  Sex: Male
  Weight: 50 kg

DRUGS (7)
  1. KUVAN [Suspect]
     Indication: PHENYLKETONURIA
     Dosage: 1100 MG QD PO
     Route: 048
     Dates: start: 20081001, end: 20090702
  2. KUVAN [Suspect]
     Indication: PHENYLKETONURIA
     Dosage: 1100 MG QD PO
     Route: 048
     Dates: start: 20090706
  3. SYNTHROID [Concomitant]
  4. FLOMAX [Concomitant]
  5. CALCIFEROL [Concomitant]
  6. ARTANE [Concomitant]
  7. CALCIUM [Concomitant]

REACTIONS (1)
  - PANCREATITIS [None]
